FAERS Safety Report 8902701 (Version 2)
Quarter: 2012Q4

REPORT INFORMATION
  Report Type: 
  Country: US (occurrence: US)
  Receive Date: 20121112
  Receipt Date: 20121112
  Transmission Date: 20130627
  Serious: No
  Sender: FDA-Public Use
  Company Number: US-ASTRAZENECA-2012SE82713

PATIENT
  Age: 53 Year
  Sex: Female
  Weight: 63.5 kg

DRUGS (3)
  1. SEROQUEL XR [Suspect]
     Indication: BIPOLAR I DISORDER
     Route: 048
     Dates: start: 20120923, end: 201210
  2. SEROQUEL XR [Suspect]
     Indication: BIPOLAR I DISORDER
     Route: 048
     Dates: start: 201210, end: 201211
  3. SEROQUEL XR [Suspect]
     Indication: BIPOLAR I DISORDER
     Route: 048

REACTIONS (14)
  - Diarrhoea [Unknown]
  - Insomnia [Unknown]
  - Feeling of body temperature change [Unknown]
  - Withdrawal syndrome [Unknown]
  - Headache [Unknown]
  - Anxiety [Unknown]
  - Fall [Unknown]
  - Hyperventilation [Unknown]
  - Aphagia [Unknown]
  - Feeling abnormal [Unknown]
  - Dizziness [Unknown]
  - Palpitations [Unknown]
  - Vomiting [Unknown]
  - Drug dose omission [Unknown]
